FAERS Safety Report 18425086 (Version 1)
Quarter: 2020Q4

REPORT INFORMATION
  Report Type: Spontaneous
  Country: HU (occurrence: HU)
  Receive Date: 20201026
  Receipt Date: 20201026
  Transmission Date: 20210114
  Serious: Yes (Disabling, Other)
  Sender: FDA-Public Use
  Company Number: HU-BAUSCH-BL-2020-030732

PATIENT
  Age: 68 Year
  Sex: Male

DRUGS (25)
  1. ALGOPYRIN (METAMIZOLE SODIUM) [Suspect]
     Active Substance: METAMIZOLE SODIUM
     Indication: PRODUCT USED FOR UNKNOWN INDICATION
     Dosage: TOTAL
     Route: 065
     Dates: start: 20200117, end: 20200117
  2. NO-SPA [Suspect]
     Active Substance: DROTAVERINE HYDROCHLORIDE
     Indication: PRODUCT USED FOR UNKNOWN INDICATION
     Route: 065
     Dates: start: 20200120, end: 20200120
  3. FENTANYL. [Suspect]
     Active Substance: FENTANYL
     Indication: EPIDURAL ANAESTHESIA
     Route: 065
     Dates: start: 20200117, end: 20200117
  4. ALPRAZOLAM. [Suspect]
     Active Substance: ALPRAZOLAM
     Indication: PRODUCT USED FOR UNKNOWN INDICATION
     Dosage: TOTAL
     Route: 065
     Dates: start: 20200117, end: 20200117
  5. METRONIDAZOLE. [Suspect]
     Active Substance: METRONIDAZOLE
     Indication: PRODUCT USED FOR UNKNOWN INDICATION
     Dosage: TOTAL
     Route: 065
     Dates: start: 20200117, end: 20200117
  6. CLAFORAN [Suspect]
     Active Substance: CEFOTAXIME SODIUM
     Dosage: TOTAL
     Route: 065
     Dates: start: 20200117, end: 20200117
  7. ALGOPYRIN (METAMIZOLE SODIUM) [Suspect]
     Active Substance: METAMIZOLE SODIUM
     Route: 065
     Dates: start: 20200120, end: 20200120
  8. EPINEPHRINE. [Suspect]
     Active Substance: EPINEPHRINE
     Indication: PRODUCT USED FOR UNKNOWN INDICATION
     Route: 065
     Dates: start: 20200117, end: 20200117
  9. CLAFORAN [Suspect]
     Active Substance: CEFOTAXIME SODIUM
     Indication: PRODUCT USED FOR UNKNOWN INDICATION
     Route: 065
     Dates: start: 20200117, end: 20200121
  10. PROPOFOL. [Suspect]
     Active Substance: PROPOFOL
     Indication: PRODUCT USED FOR UNKNOWN INDICATION
     Dosage: TOTAL
     Route: 065
     Dates: start: 20200117, end: 20200117
  11. PARACETAMOL [Suspect]
     Active Substance: ACETAMINOPHEN
     Indication: PREMEDICATION
     Dosage: TOTAL
     Route: 065
     Dates: start: 20200117, end: 20200117
  12. CONTROLOC [Suspect]
     Active Substance: PANTOPRAZOLE SODIUM
     Route: 065
     Dates: start: 20200128, end: 20200129
  13. FENTANYL. [Suspect]
     Active Substance: FENTANYL
     Route: 065
     Dates: start: 20200117, end: 20200117
  14. ROCURONIUM BROMIDE. [Suspect]
     Active Substance: ROCURONIUM BROMIDE
     Indication: PRODUCT USED FOR UNKNOWN INDICATION
     Route: 065
     Dates: start: 20200117, end: 20200117
  15. SUFENTANIL [Suspect]
     Active Substance: SUFENTANIL
     Indication: PRODUCT USED FOR UNKNOWN INDICATION
     Dosage: TOTAL
     Route: 065
     Dates: start: 20200117, end: 20200117
  16. METRONIDAZOLE. [Suspect]
     Active Substance: METRONIDAZOLE
     Route: 065
     Dates: start: 20200117, end: 20200127
  17. BUPIVACAINE. [Suspect]
     Active Substance: BUPIVACAINE
     Indication: EPIDURAL ANAESTHESIA
     Route: 065
     Dates: start: 20200117, end: 20200117
  18. CLEXANE [Suspect]
     Active Substance: ENOXAPARIN SODIUM
     Indication: PRODUCT USED FOR UNKNOWN INDICATION
     Route: 065
     Dates: start: 202001, end: 20200129
  19. LIDOCAINE. [Suspect]
     Active Substance: LIDOCAINE
     Indication: EPIDURAL ANAESTHESIA
     Route: 065
     Dates: start: 20200117, end: 20200117
  20. BRIDION [Suspect]
     Active Substance: SUGAMMADEX
     Indication: PRODUCT USED FOR UNKNOWN INDICATION
     Dosage: TOTAL
     Route: 065
     Dates: start: 20200117, end: 20200117
  21. ONDANSETRON [Suspect]
     Active Substance: ONDANSETRON
     Indication: PRODUCT USED FOR UNKNOWN INDICATION
     Dosage: TOTAL
     Route: 065
     Dates: start: 20200117, end: 20200117
  22. CONTROLOC [Suspect]
     Active Substance: PANTOPRAZOLE SODIUM
     Indication: PRODUCT USED FOR UNKNOWN INDICATION
     Route: 065
     Dates: start: 20200117, end: 20200129
  23. TRAMADOL HYDROCHLORIDE. [Suspect]
     Active Substance: TRAMADOL HYDROCHLORIDE
     Indication: PRODUCT USED FOR UNKNOWN INDICATION
     Route: 065
     Dates: start: 20200120, end: 20200120
  24. FENTANYL. [Suspect]
     Active Substance: FENTANYL
     Route: 065
     Dates: start: 20200119, end: 20200119
  25. SUPRAX [Suspect]
     Active Substance: CEFIXIME
     Indication: PRODUCT USED FOR UNKNOWN INDICATION
     Route: 065
     Dates: start: 20200122, end: 20200127

REACTIONS (1)
  - Deafness neurosensory [Not Recovered/Not Resolved]

NARRATIVE: CASE EVENT DATE: 20200124
